FAERS Safety Report 4280199-0 (Version None)
Quarter: 2004Q1

REPORT INFORMATION
  Report Type: 
  Country: None (occurrence: None)
  Receive Date: 20040128
  Receipt Date: 20040116
  Transmission Date: 20041129
  Serious: Yes (Death)
  Sender: FDA-Public Use
  Company Number: GB-GLAXOSMITHKLINE-B0320475A

PATIENT

DRUGS (7)
  1. THIOGUANINE [Suspect]
     Indication: ACUTE MYELOID LEUKAEMIA
     Dosage: 100MGM2 TWICE PER DAY
  2. GEMTUZUMAB OZOGAMICIN [Concomitant]
     Indication: ACUTE MYELOID LEUKAEMIA
     Dosage: 3MGM2 SINGLE DOSE
  3. DAUNORUBICIN HCL [Concomitant]
     Indication: ACUTE MYELOID LEUKAEMIA
     Dosage: 50MGM2 PER DAY
     Route: 042
  4. CYTOSINE ARABINOSIDE [Concomitant]
     Indication: ACUTE MYELOID LEUKAEMIA
  5. AMSACRINE [Concomitant]
     Dosage: 100MGM2 PER DAY
     Route: 042
  6. ETOPOSIDE [Concomitant]
     Route: 042
  7. MITOXANTRONE [Concomitant]

REACTIONS (1)
  - VENOOCCLUSIVE DISEASE [None]
